FAERS Safety Report 4541060-7 (Version None)
Quarter: 2004Q4

REPORT INFORMATION
  Report Type: 
  Country: None (occurrence: None)
  Receive Date: 20041228
  Receipt Date: 20041215
  Transmission Date: 20050328
  Serious: Yes (Hospitalization)
  Sender: FDA-Public Use
  Company Number: 2004241483JP

PATIENT
  Age: 75 Year
  Sex: Female
  Weight: 44.9 kg

DRUGS (7)
  1. SULFASALAZINE [Suspect]
     Indication: COLITIS
     Dosage: 500 MG (1 IN 4 D), ORAL
     Route: 048
     Dates: start: 20040906, end: 20041020
  2. CANDESARTAN  CILEXETIL (CANDESARTAN CILEXETIL) [Concomitant]
  3. LACTOBACILLUS BIFIDUS, LYOPHILIZED (LACTOBACILLUS BIFIDUS, LYOPHILIZED [Concomitant]
  4. MAGNESIUM OXIDE (MAGNESIUM OXIDE) [Concomitant]
  5. SENNA LEAF (SENNA LEAF) [Concomitant]
  6. INSULIN ASPART (INSULIN ASPART) [Concomitant]
  7. INSULIN INJECTION, BIPHASIC (INSULIN INJECTION, BIPHASIC) [Concomitant]

REACTIONS (3)
  - INFECTIOUS MONONUCLEOSIS [None]
  - LYMPHOCYTE MORPHOLOGY ABNORMAL [None]
  - WHITE BLOOD CELL COUNT DECREASED [None]
